FAERS Safety Report 9892161 (Version 2)
Quarter: 2014Q1

REPORT INFORMATION
  Report Type: Report from Study
  Country: US (occurrence: US)
  Receive Date: 20140212
  Receipt Date: 20140213
  Transmission Date: 20141002
  Serious: Yes (Hospitalization)
  Sender: FDA-Public Use
  Company Number: US-ROCHE-1347584

PATIENT
  Sex: Female

DRUGS (2)
  1. AVASTIN [Suspect]
     Indication: PRODUCT USED FOR UNKNOWN INDICATION
     Route: 042
     Dates: start: 20140114, end: 20140114
  2. AVASTIN [Suspect]
     Route: 065

REACTIONS (4)
  - Lymphadenopathy [Unknown]
  - Hydronephrosis [Unknown]
  - Tumour pain [Unknown]
  - Nausea [Unknown]
